FAERS Safety Report 6307464-7 (Version None)
Quarter: 2009Q3

REPORT INFORMATION
  Report Type: 
  Country: None (occurrence: None)
  Receive Date: 20090813
  Receipt Date: 20090807
  Transmission Date: 20100115
  Serious: Yes (Hospitalization)
  Sender: FDA-Public Use
  Company Number: US-ROCHE-639185

PATIENT
  Sex: Male
  Weight: 76.2 kg

DRUGS (6)
  1. DIAZEPAM [Suspect]
     Indication: DRUG USE FOR UNKNOWN INDICATION
     Dosage: DOSE: 5 MG EVERY 8 HOURS AS NEEDED
     Route: 048
     Dates: start: 20080923, end: 20081010
  2. NAPROXEN [Suspect]
     Indication: OSTEOARTHRITIS
     Dosage: ADDITIONAL INDICATION: RHEUMATOID ARTHRITIS, DOSE/ROUTE/FREQUENCY/LOT NUMBER/: BLINDED
     Route: 065
     Dates: start: 20070922
  3. BLINDED CELECOXIB [Suspect]
     Indication: OSTEOARTHRITIS
     Dosage: ADDITIONAL INDICATION: RHEUMATOID ARTHRITIS, DOSE/ROUTE/FREQUENCY/LOT NUMBER/: BLINDED
     Route: 065
     Dates: start: 20070922
  4. IBUPROFEN [Suspect]
     Indication: OSTEOARTHRITIS
     Dosage: ADDITIONAL INDICATION: RHEUMATOID ARTHRITIS, DOSE/ROUTE/FREQUENCY/LOT NUMBER/: BLINDED
     Route: 065
     Dates: start: 20070922
  5. PERCOCET [Suspect]
     Indication: DRUG USE FOR UNKNOWN INDICATION
     Dosage: DOSING REGIMEN: 5/325 MG ONE TABLET EVERY 4 HOURS AS NEEDED
     Route: 048
     Dates: start: 20080923, end: 20081010
  6. ESOMEPRAZOLE [Concomitant]
     Dosage: DOSING FREQUENCY: DAILY
     Dates: start: 20070922

REACTIONS (3)
  - ANAEMIA POSTOPERATIVE [None]
  - ASTHENIA [None]
  - MENTAL STATUS CHANGES [None]
